FAERS Safety Report 8949774 (Version 1)
Quarter: 2012Q4

REPORT INFORMATION
  Report Type: 
  Country: US (occurrence: US)
  Receive Date: 20121206
  Receipt Date: 20121206
  Transmission Date: 20130627
  Serious: Yes (Other)
  Sender: FDA-Public Use
  Company Number: US-PFIZER INC-2012306864

PATIENT
  Age: 50 Year
  Sex: Female
  Weight: 136 kg

DRUGS (3)
  1. LYRICA [Suspect]
     Indication: FIBROMYALGIA
     Dosage: 50mg in morning and 75mg at night, 2x/day
     Dates: start: 200710
  2. LYRICA [Suspect]
     Indication: RHEUMATOID ARTHRITIS
  3. LISINOPRIL W/HYDROCHLOROTHIAZIDE [Concomitant]
     Indication: BLOOD PRESSURE HIGH
     Dosage: 10/12.5 mg, daily

REACTIONS (3)
  - Confusional state [Unknown]
  - Speech disorder [Unknown]
  - Oedema peripheral [Recovered/Resolved]
